FAERS Safety Report 18032182 (Version 1)
Quarter: 2020Q3

REPORT INFORMATION
  Report Type: Spontaneous
  Country: US (occurrence: US)
  Receive Date: 20200716
  Receipt Date: 20200716
  Transmission Date: 20201103
  Serious: Yes (Hospitalization)
  Sender: FDA-Public Use
  Company Number: US-CELLTRION-2020-US-013690

PATIENT
  Age: 65 Year
  Sex: Male

DRUGS (4)
  1. SERTRALINE [Suspect]
     Active Substance: SERTRALINE HYDROCHLORIDE
     Dosage: 25 MG DAILY
  2. LAMOTRIGINE (NON?SPECIFIC) [Suspect]
     Active Substance: LAMOTRIGINE
     Indication: PRODUCT USED FOR UNKNOWN INDICATION
     Dosage: 150 MG TWICE DAILY INCREASED TO 200 MG TWICE DAILY
  3. WARFARIN [Suspect]
     Active Substance: WARFARIN
  4. VALPROIC ACID. [Suspect]
     Active Substance: VALPROIC ACID
     Indication: PRODUCT USED FOR UNKNOWN INDICATION
     Dosage: 1500 MG TWICE DAILY

REACTIONS (3)
  - Delirium [Unknown]
  - Toxicity to various agents [Unknown]
  - Drug interaction [Unknown]
